FAERS Safety Report 8594036-7 (Version None)
Quarter: 2012Q3

REPORT INFORMATION
  Report Type: 
  Country: None (occurrence: None)
  Receive Date: 20120814
  Receipt Date: 20120809
  Transmission Date: 20120928
  Serious: Yes (Hospitalization)
  Sender: FDA-Public Use
  Company Number: DE-ABBOTT-12P-062-0967481-00

PATIENT
  Sex: Female

DRUGS (2)
  1. CONTRACEPTIVE [Concomitant]
     Indication: CONTRACEPTION
     Dosage: UNK.
  2. HUMIRA [Suspect]
     Indication: RHEUMATOID ARTHRITIS
     Route: 058
     Dates: start: 20090108

REACTIONS (1)
  - MYELITIS TRANSVERSE [None]
